FAERS Safety Report 7397977-1 (Version None)
Quarter: 2011Q2

REPORT INFORMATION
  Report Type: 
  Country: None (occurrence: None)
  Receive Date: 20110406
  Receipt Date: 20110325
  Transmission Date: 20111010
  Serious: Yes (Hospitalization)
  Sender: FDA-Public Use
  Company Number: PHHY2011FR24918

PATIENT
  Age: 40 Year
  Sex: Female

DRUGS (9)
  1. NAVELBINE [Suspect]
     Indication: BREAST CANCER
     Dosage: 1 DF, UNK
     Route: 042
     Dates: start: 20100615
  2. FLUOROURACIL [Suspect]
     Dosage: 422 MG/M2, CYCLIC
     Route: 042
     Dates: start: 20101109
  3. TAXOL [Suspect]
     Indication: BREAST CANCER
     Dosage: 140 MG/M2, UNK
     Route: 042
     Dates: start: 20101109
  4. ENDOXAN [Suspect]
     Indication: BREAST CANCER
     Dosage: 241 MG/M2, UNK
     Route: 042
     Dates: start: 20100615
  5. FLUOROURACIL [Suspect]
     Indication: BREAST CANCER
     Dosage: 422 MG/M2, CYCLIC
     Route: 042
     Dates: start: 20100615
  6. NAVELBINE [Suspect]
     Dosage: 1 DF, UNK
     Dates: start: 20101109
  7. FOLINIC ACID [Suspect]
     Indication: BREAST CANCER
     Dosage: 250 MG/M2, UNK
     Route: 042
     Dates: start: 20100615
  8. FOLINIC ACID [Suspect]
     Dosage: 250 MG/M2, UNK
     Route: 042
     Dates: start: 20101109
  9. ENDOXAN [Suspect]
     Dosage: 241 MG/M2, UNK
     Route: 042
     Dates: start: 20101109

REACTIONS (2)
  - PYREXIA [None]
  - CHILLS [None]
